FAERS Safety Report 23377475 (Version 2)
Quarter: 2024Q1

REPORT INFORMATION
  Report Type: Other
  Country: EG (occurrence: EG)
  Receive Date: 20240108
  Receipt Date: 20240220
  Transmission Date: 20240410
  Serious: Yes (Other)
  Sender: FDA-Public Use
  Company Number: EG-002147023-NVSC2023EG277176

PATIENT
  Age: 64 Year
  Sex: Female

DRUGS (1)
  1. LUCENTIS [Suspect]
     Active Substance: RANIBIZUMAB
     Indication: Diabetic retinal oedema
     Dosage: UNK (IN RIGHT EYE)
     Route: 050
     Dates: start: 20231005, end: 20231216

REACTIONS (1)
  - Eye allergy [Not Recovered/Not Resolved]
